FAERS Safety Report 21240034 (Version 1)
Quarter: 2022Q3

REPORT INFORMATION
  Report Type: Spontaneous
  Country: US (occurrence: US)
  Receive Date: 20220822
  Receipt Date: 20220822
  Transmission Date: 20221026
  Serious: Yes (Hospitalization)
  Sender: FDA-Public Use
  Company Number: US-BRISTOL-MYERS SQUIBB COMPANY-2022-092887

PATIENT
  Age: 58 Year
  Sex: Male
  Weight: 110.68 kg

DRUGS (1)
  1. REVLIMID [Suspect]
     Active Substance: LENALIDOMIDE
     Indication: Product used for unknown indication
     Dosage: FREQUENCY : DAILY ON DAYS 1-7 AND 15-21 EVERY 28 DAYS
     Route: 048
     Dates: start: 20220201

REACTIONS (2)
  - COVID-19 [Unknown]
  - Off label use [Unknown]
